FAERS Safety Report 25216506 (Version 3)
Quarter: 2025Q3

REPORT INFORMATION
  Report Type: Other
  Country: IL (occurrence: IL)
  Receive Date: 20250419
  Receipt Date: 20250806
  Transmission Date: 20251021
  Serious: Yes (Congenital Anomaly, Other)
  Sender: MACLEODS
  Company Number: IL-MACLEODS PHARMA-MAC2025052653

PATIENT

DRUGS (2)
  1. EMTRICITABINE\TENOFOVIR [Suspect]
     Active Substance: EMTRICITABINE\TENOFOVIR
     Indication: Product used for unknown indication
     Route: 064
  2. TIVICAY [Suspect]
     Active Substance: DOLUTEGRAVIR SODIUM
     Indication: Product used for unknown indication
     Dosage: (NUMBER OF COURSE WAS 1, PRIOR TO CONCEPTION DURING FIRST TRIMESTER AND ONGOING AT DELIVERY)
     Route: 064

REACTIONS (4)
  - Pulmonary artery stenosis congenital [Unknown]
  - Hydrocephalus [Unknown]
  - Premature baby [Unknown]
  - Foetal exposure during pregnancy [Unknown]
